FAERS Safety Report 8295860-0 (Version None)
Quarter: 2012Q2

REPORT INFORMATION
  Report Type: 
  Country: None (occurrence: None)
  Receive Date: 20120418
  Receipt Date: 20120404
  Transmission Date: 20120825
  Serious: Yes (Hospitalization)
  Sender: FDA-Public Use
  Company Number: BR-ROCHE-1059961

PATIENT
  Sex: Male
  Weight: 94 kg

DRUGS (2)
  1. COPEGUS [Suspect]
     Indication: HEPATITIS C
     Route: 048
     Dates: start: 20101004, end: 20110808
  2. PEGINTERFERON ALFA-2A [Suspect]
     Indication: HEPATITIS C
     Route: 058
     Dates: start: 20101004, end: 20110808

REACTIONS (5)
  - ANAEMIA [None]
  - DIZZINESS [None]
  - RENAL FAILURE ACUTE [None]
  - CHEST PAIN [None]
  - TACHYCARDIA [None]
